FAERS Safety Report 13823558 (Version 1)
Quarter: 2017Q3

REPORT INFORMATION
  Report Type: Spontaneous
  Country: US (occurrence: US)
  Receive Date: 20170802
  Receipt Date: 20170802
  Transmission Date: 20171127
  Serious: Yes (Hospitalization)
  Sender: FDA-Public Use
  Company Number: US-BRISTOL-MYERS SQUIBB COMPANY-BMS-2017-040200

PATIENT
  Age: 65 Year
  Sex: Male

DRUGS (2)
  1. ZEFROXE [Concomitant]
     Indication: NAUSEA
     Dosage: 8 MG, UNK
     Route: 048
  2. OPDIVO [Suspect]
     Active Substance: NIVOLUMAB
     Indication: NON-SMALL CELL LUNG CANCER
     Dosage: 3 MG/KG, Q2WK
     Route: 042
     Dates: start: 20161213, end: 20170210

REACTIONS (5)
  - Constipation [Recovered/Resolved]
  - Weight decreased [Unknown]
  - Dysphagia [Unknown]
  - Vomiting [Unknown]
  - Nausea [Unknown]

NARRATIVE: CASE EVENT DATE: 20170104
